FAERS Safety Report 16218631 (Version 7)
Quarter: 2019Q3

REPORT INFORMATION
  Report Type: Report from Study
  Country: BR (occurrence: BR)
  Receive Date: 20190419
  Receipt Date: 20190717
  Transmission Date: 20191004
  Serious: No
  Sender: FDA-Public Use
  Company Number: PHHY2019BR088512

PATIENT
  Age: 47 Year
  Sex: Female
  Weight: 69 kg

DRUGS (7)
  1. KISQALI [Suspect]
     Active Substance: RIBOCICLIB
     Dosage: 3 TABLETS, QD
     Route: 065
  2. XGEVA [Concomitant]
     Active Substance: DENOSUMAB
     Indication: NEUROENDOCRINE TUMOUR
     Dosage: 120 MG, Q4W (EVERY 28 DAYS)
     Route: 058
     Dates: start: 20181031
  3. KISQALI [Suspect]
     Active Substance: RIBOCICLIB
     Indication: NEUROENDOCRINE TUMOUR
     Dosage: 600 MG, QD (21 DAYS CYCLES WITH INTERRUPTION OF 7 DAYS)
     Route: 048
     Dates: start: 20181203
  4. ATORVASTATIN [Suspect]
     Active Substance: ATORVASTATIN
     Indication: BLOOD CHOLESTEROL INCREASED
     Dosage: 10 MG, QD
     Route: 048
     Dates: start: 201811
  5. ZOLADEX [Concomitant]
     Active Substance: GOSERELIN ACETATE
     Indication: NEUROENDOCRINE TUMOUR
     Dosage: 10.8 MG, EVERY 3 MONTHS
     Route: 058
     Dates: start: 20181128
  6. SANDOSTATIN LAR DEPOT [Suspect]
     Active Substance: OCTREOTIDE ACETATE
     Indication: NEUROENDOCRINE TUMOUR
     Dosage: 30 MG, QMO (EVERY 28 DAYS)
     Route: 030
     Dates: start: 20181003
  7. LETROZOLE. [Suspect]
     Active Substance: LETROZOLE
     Indication: NEUROENDOCRINE TUMOUR
     Dosage: 2.5 MG, QD
     Route: 048
     Dates: start: 20181203

REACTIONS (13)
  - Macule [Not Recovered/Not Resolved]
  - Dehydration [Not Recovered/Not Resolved]
  - Pain of skin [Unknown]
  - Lung neoplasm [Unknown]
  - Burning sensation [Recovering/Resolving]
  - Skin exfoliation [Recovering/Resolving]
  - Skin disorder [Recovering/Resolving]
  - Wound haemorrhage [Not Recovered/Not Resolved]
  - Madarosis [Unknown]
  - Skin hypertrophy [Recovering/Resolving]
  - Dry skin [Recovering/Resolving]
  - Alopecia [Unknown]
  - Lip dry [Recovering/Resolving]

NARRATIVE: CASE EVENT DATE: 201905
